FAERS Safety Report 5025874-5 (Version None)
Quarter: 2006Q2

REPORT INFORMATION
  Report Type: 
  Country: None (occurrence: None)
  Receive Date: 20060427
  Receipt Date: 20050422
  Transmission Date: 20061013
  Serious: Yes (Other)
  Sender: FDA-Public Use
  Company Number: 2005064660

PATIENT
  Age: 12 Year
  Sex: Male

DRUGS (2)
  1. ZITHROMAX [Suspect]
     Indication: BRONCHITIS
     Route: 048
     Dates: start: 20050401
  2. MOTRIN [Suspect]
     Indication: PYREXIA
     Dosage: 800 TO 1200 MG/DAY (400 MG, BID TO TID)
     Dates: start: 20050327, end: 20050403

REACTIONS (2)
  - DRUG INEFFECTIVE [None]
  - STEVENS-JOHNSON SYNDROME [None]
